FAERS Safety Report 8923809 (Version 1)
Quarter: 2012Q4

REPORT INFORMATION
  Report Type: 
  Country: IT (occurrence: IT)
  Receive Date: 20121126
  Receipt Date: 20121126
  Transmission Date: 20130627
  Serious: Yes (Hospitalization)
  Sender: FDA-Public Use
  Company Number: IT-BAYER-2012-121339

PATIENT
  Age: 72 Year
  Sex: Male

DRUGS (8)
  1. CARDIOASPIRIN [Suspect]
     Indication: ISCHEMIC HEART DISEASE
     Dosage: 100 mg, QD
     Route: 048
     Dates: start: 20120101, end: 20121107
  2. CARDIOASPIRIN [Suspect]
     Indication: ISCHEMIC HEART DISEASE
  3. PLAVIX [Suspect]
     Indication: ISCHEMIC HEART DISEASE
     Dosage: Daily dose 75 mg
     Route: 048
     Dates: start: 20120401, end: 20121107
  4. PLAVIX [Suspect]
     Indication: ISCHEMIC HEART DISEASE
     Dosage: UNK
  5. LAMIVUDINE [Concomitant]
  6. PANTOPRAZOLE [Concomitant]
     Route: 048
  7. CONGESCOR [Concomitant]
     Dosage: Daily dose 5 mg
     Route: 048
  8. BENUR [Concomitant]

REACTIONS (2)
  - Abdominal pain upper [Unknown]
  - Troponin increased [Unknown]
